FAERS Safety Report 15388493 (Version 1)
Quarter: 2018Q3

REPORT INFORMATION
  Report Type: Report from Study
  Country: CO (occurrence: CO)
  Receive Date: 20180915
  Receipt Date: 20180915
  Transmission Date: 20181010
  Serious: Yes (Death, Hospitalization)
  Sender: FDA-Public Use
  Company Number: PHHY2018CO098018

PATIENT
  Age: 62 Year
  Sex: Female
  Weight: 60 kg

DRUGS (1)
  1. ENTRESTO [Suspect]
     Active Substance: SACUBITRIL\VALSARTAN
     Indication: CARDIAC FAILURE
     Dosage: 50 MG, Q12H
     Route: 048
     Dates: start: 20180402

REACTIONS (1)
  - Death [Fatal]

NARRATIVE: CASE EVENT DATE: 20180817
